FAERS Safety Report 5757602-X (Version None)
Quarter: 2008Q2

REPORT INFORMATION
  Report Type: 
  Country: None (occurrence: None)
  Receive Date: 20080603
  Receipt Date: 20080522
  Transmission Date: 20081010
  Serious: Yes (Life-Threatening, Hospitalization, Disabling, Other)
  Sender: FDA-Public Use
  Company Number: AU-PFIZER INC-2008034850

PATIENT
  Sex: Female
  Weight: 71 kg

DRUGS (4)
  1. CHANTIX [Suspect]
     Indication: SMOKING CESSATION THERAPY
     Dates: start: 20080229, end: 20080321
  2. ALCOHOL [Suspect]
  3. TRAMADOL HCL [Suspect]
     Route: 048
  4. EFFEXOR [Concomitant]
     Route: 048

REACTIONS (6)
  - AGITATION [None]
  - DEPRESSION [None]
  - EMOTIONAL DISORDER [None]
  - MOOD ALTERED [None]
  - OVERDOSE [None]
  - PARANOIA [None]
